FAERS Safety Report 5160785-6 (Version None)
Quarter: 2006Q4

REPORT INFORMATION
  Report Type: 
  Country: None (occurrence: None)
  Receive Date: 20061121
  Receipt Date: 20061109
  Transmission Date: 20070319
  Serious: Yes (Other)
  Sender: FDA-Public Use
  Company Number: 2006141338

PATIENT
  Age: 77 Year
  Sex: Female
  Weight: 49.8957 kg

DRUGS (9)
  1. LIPITOR [Suspect]
     Indication: BLOOD CHOLESTEROL ABNORMAL
     Dosage: 10 MG (10 MG, 1 IN 1 D)
  2. ARICEPT [Suspect]
     Indication: DEMENTIA ALZHEIMER'S TYPE
     Dosage: 5 MG (5 MG, 1 IN 1 D)
     Dates: start: 20060101
  3. ATENOLOL [Concomitant]
  4. NAMENDA [Concomitant]
  5. ROZEREM [Concomitant]
  6. ENALAPRIL MALEATE [Concomitant]
  7. ENALAPRIL MALEATE W/HYDROCHLOROTHIAZIDE [Concomitant]
  8. FOSAMAX [Concomitant]
  9. ESCITALOPRAM OXALATE [Concomitant]

REACTIONS (3)
  - DEMENTIA ALZHEIMER'S TYPE [None]
  - DEPRESSION [None]
  - DIARRHOEA [None]
